FAERS Safety Report 7418704-5 (Version None)
Quarter: 2011Q2

REPORT INFORMATION
  Report Type: 
  Country: None (occurrence: None)
  Receive Date: 20110408
  Receipt Date: 20110404
  Transmission Date: 20111010
  Serious: Yes (Hospitalization)
  Sender: FDA-Public Use
  Company Number: 2010SP019253

PATIENT
  Age: 31 Year
  Sex: Female
  Weight: 59.4212 kg

DRUGS (1)
  1. NUVARING [Suspect]
     Indication: HEADACHE
     Dates: start: 20080801, end: 20090701

REACTIONS (14)
  - DERMATITIS ATOPIC [None]
  - C-REACTIVE PROTEIN INCREASED [None]
  - RHINITIS ALLERGIC [None]
  - ANTITHROMBIN III DECREASED [None]
  - HYPERLIPIDAEMIA [None]
  - SINUSITIS [None]
  - DEEP VEIN THROMBOSIS [None]
  - PROTHROMBIN TIME SHORTENED [None]
  - INTERNATIONAL NORMALISED RATIO DECREASED [None]
  - PULMONARY EMBOLISM [None]
  - RIGHT ATRIAL PRESSURE INCREASED [None]
  - ALCOHOL USE [None]
  - RASH [None]
  - HEADACHE [None]
